FAERS Safety Report 7504303-3 (Version None)
Quarter: 2011Q2

REPORT INFORMATION
  Report Type: 
  Country: None (occurrence: None)
  Receive Date: 20110525
  Receipt Date: 20110517
  Transmission Date: 20111010
  Serious: Yes (Other)
  Sender: FDA-Public Use
  Company Number: FI-BAXTER-2011BH016546

PATIENT
  Age: 56 Year
  Sex: Male

DRUGS (6)
  1. WARFARIN SODIUM [Suspect]
     Indication: COAGULOPATHY
     Route: 048
  2. FENTANYL [Concomitant]
     Indication: SEDATION
     Route: 065
  3. HEPARIN [Suspect]
     Route: 041
  4. HEPARIN [Suspect]
     Route: 041
  5. HEPARIN [Suspect]
     Indication: COAGULOPATHY
     Route: 040
  6. MIDAZOLAM HCL [Concomitant]
     Indication: SEDATION
     Route: 065

REACTIONS (1)
  - ISCHAEMIC STROKE [None]
